FAERS Safety Report 16105436 (Version 1)
Quarter: 2019Q1

REPORT INFORMATION
  Report Type: Report from Study
  Country: CA (occurrence: CA)
  Receive Date: 20190322
  Receipt Date: 20190322
  Transmission Date: 20190418
  Serious: Yes (Hospitalization)
  Sender: FDA-Public Use
  Company Number: CA-PFIZER INC-2019121119

PATIENT
  Age: 33 Year
  Sex: Female
  Weight: 61 kg

DRUGS (4)
  1. REMICADE [Suspect]
     Active Substance: INFLIXIMAB
     Indication: CROHN^S DISEASE
     Dosage: 600 MG, 1 EVERY 6 WEEK(S)
     Route: 042
  2. ZOLOFT [Suspect]
     Active Substance: SERTRALINE HYDROCHLORIDE
     Dosage: 25 MG, 1X/DAY
     Route: 048
  3. IMURAN [Suspect]
     Active Substance: AZATHIOPRINE
     Dosage: 75 MG, 1X/DAY
     Route: 048
  4. ATIVAN [Suspect]
     Active Substance: LORAZEPAM
     Dosage: UNK, AS NEEDED

REACTIONS (1)
  - Abortion spontaneous [Unknown]
